FAERS Safety Report 17293680 (Version 1)
Quarter: 2020Q1

REPORT INFORMATION
  Report Type: Spontaneous
  Country: US (occurrence: US)
  Receive Date: 20200120
  Receipt Date: 20200120
  Transmission Date: 20200409
  Serious: Yes (Other)
  Sender: FDA-Public Use
  Company Number: None

PATIENT
  Age: 11 Year
  Sex: Male
  Weight: 28.8 kg

DRUGS (1)
  1. TAMIFLU [Suspect]
     Active Substance: OSELTAMIVIR PHOSPHATE
     Indication: INFLUENZA LIKE ILLNESS
     Dosage: ?          QUANTITY:1 CAPSULE(S);?
     Route: 048
     Dates: start: 20191228, end: 20191230

REACTIONS (7)
  - Seizure [None]
  - Nausea [None]
  - Emotional disorder [None]
  - Headache [None]
  - Listless [None]
  - Vomiting [None]
  - Nightmare [None]

NARRATIVE: CASE EVENT DATE: 20191230
